FAERS Safety Report 19047137 (Version 1)
Quarter: 2021Q1

REPORT INFORMATION
  Report Type: Spontaneous
  Country: JP (occurrence: JP)
  Receive Date: 20210323
  Receipt Date: 20210323
  Transmission Date: 20210420
  Serious: Yes (Death, Life-Threatening, Hospitalization, Other)
  Sender: FDA-Public Use
  Company Number: JP-JNJFOC-A-CH2017-157634

PATIENT
  Age: 32 Year
  Sex: Female

DRUGS (19)
  1. FUROSEMIDE. [Concomitant]
     Active Substance: FUROSEMIDE
     Dates: end: 20180122
  2. CARELOAD LA [Suspect]
     Active Substance: BERAPROST SODIUM
     Indication: PULMONARY ARTERIAL HYPERTENSION
     Route: 048
     Dates: start: 20170730, end: 20170730
  3. LASIX [Concomitant]
     Active Substance: FUROSEMIDE
     Route: 048
     Dates: start: 20160512
  4. OXYGEN. [Concomitant]
     Active Substance: OXYGEN
  5. OPSUMIT [Suspect]
     Active Substance: MACITENTAN
     Dosage: 10 MG, QD
     Route: 048
     Dates: start: 20160128, end: 20170731
  6. OPSUMIT [Suspect]
     Active Substance: MACITENTAN
     Dosage: 10 MG, QD
     Route: 048
     Dates: start: 20170803, end: 20181022
  7. WARFARIN [Suspect]
     Active Substance: WARFARIN
     Route: 048
     Dates: start: 20170730, end: 20170730
  8. LASIX [Concomitant]
     Active Substance: FUROSEMIDE
     Indication: PULMONARY ARTERIAL HYPERTENSION
     Route: 048
     Dates: start: 20160128, end: 20160511
  9. OPSUMIT [Suspect]
     Active Substance: MACITENTAN
     Indication: PULMONARY ARTERIAL HYPERTENSION
     Dosage: 350 MG, QD
     Route: 048
     Dates: start: 20170730, end: 20170730
  10. CARELOAD LA [Suspect]
     Active Substance: BERAPROST SODIUM
     Indication: PULMONARY ARTERIAL HYPERTENSION
     Route: 048
     Dates: start: 20160128
  11. ADCIRCA [Suspect]
     Active Substance: TADALAFIL
     Route: 048
     Dates: start: 20181022
  12. WARFARIN [Suspect]
     Active Substance: WARFARIN
     Indication: PULMONARY ARTERIAL HYPERTENSION
     Route: 048
     Dates: start: 20160128, end: 20161012
  13. ADCIRCA [Suspect]
     Active Substance: TADALAFIL
     Indication: PULMONARY ARTERIAL HYPERTENSION
     Route: 048
     Dates: start: 20161109, end: 20171117
  14. ADCIRCA [Suspect]
     Active Substance: TADALAFIL
     Route: 048
     Dates: start: 20170730, end: 20170730
  15. WARFARIN [Suspect]
     Active Substance: WARFARIN
     Route: 048
     Dates: start: 20161013, end: 20180425
  16. REVATIO [Concomitant]
     Active Substance: SILDENAFIL CITRATE
     Indication: PULMONARY ARTERIAL HYPERTENSION
     Dosage: 60 MG, QD
     Route: 048
     Dates: start: 20160128, end: 20161108
  17. EPOPROSTENOL ACT [Concomitant]
     Active Substance: EPOPROSTENOL
     Route: 041
     Dates: start: 20170104, end: 20181022
  18. ADCIRCA [Suspect]
     Active Substance: TADALAFIL
     Route: 048
     Dates: start: 20171118
  19. EPOPROSTENOL ACT [Concomitant]
     Active Substance: EPOPROSTENOL
     Indication: PULMONARY ARTERIAL HYPERTENSION
     Route: 041
     Dates: start: 20160128, end: 20170103

REACTIONS (19)
  - Pulmonary hypertension [Fatal]
  - Enteritis [Fatal]
  - Multiple organ dysfunction syndrome [Fatal]
  - Thyrotoxic crisis [Fatal]
  - Pulmonary oedema [Fatal]
  - Colitis [Fatal]
  - Gastric haemorrhage [Fatal]
  - Pulmonary alveolar haemorrhage [Recovered/Resolved]
  - Bradycardia [Unknown]
  - Cardiac hypertrophy [Fatal]
  - Suicide attempt [Recovered/Resolved]
  - Intentional overdose [Unknown]
  - Cardio-respiratory arrest [Recovered/Resolved]
  - Gastric lavage [Unknown]
  - Gastrointestinal tube insertion [Unknown]
  - Disseminated intravascular coagulation [Fatal]
  - Blood pressure decreased [Fatal]
  - Platelet count decreased [Fatal]
  - Flushing [Recovered/Resolved]

NARRATIVE: CASE EVENT DATE: 20170731
